FAERS Safety Report 8759802 (Version 1)
Quarter: 2012Q4

REPORT INFORMATION
  Report Type: 
  Country: US (occurrence: US)
  Receive Date: 20120829
  Receipt Date: 20120829
  Transmission Date: 20130627
  Serious: Yes (Hospitalization, Other)
  Sender: FDA-Public Use
  Company Number: US-ASTRAZENECA-2012SE60567

PATIENT
  Age: 55 Year
  Sex: Female
  Weight: 78.9 kg

DRUGS (22)
  1. NEXIUM [Suspect]
     Indication: GASTROOESOPHAGEAL REFLUX DISEASE
     Route: 048
     Dates: start: 200911
  2. MERPENEM [Suspect]
     Indication: NOCARDIOSIS
     Route: 042
     Dates: start: 201006, end: 201011
  3. SEROQUEL [Suspect]
     Indication: SLEEP DISORDER
     Route: 048
     Dates: start: 2011
  4. TYLENOL [Suspect]
  5. PHENOL [Concomitant]
     Indication: COMPLEX REGIONAL PAIN SYNDROME
     Dates: start: 2012
  6. ZANTAC [Concomitant]
     Indication: GASTROOESOPHAGEAL REFLUX DISEASE
     Route: 048
  7. HYDROCORTISONE [Concomitant]
     Indication: ADRENAL INSUFFICIENCY
     Route: 048
     Dates: start: 2010
  8. LAMICTAL [Concomitant]
     Indication: CONVULSION
     Route: 048
     Dates: start: 200904
  9. DEPAKOTE [Concomitant]
     Indication: CONVULSION
     Route: 048
     Dates: start: 2005, end: 2009
  10. KLONOPIN [Concomitant]
     Indication: ANXIETY
     Route: 048
     Dates: start: 2011
  11. CYMBALTA [Concomitant]
     Indication: DEPRESSION
     Route: 048
     Dates: start: 2008
  12. OXYCODONE IR [Concomitant]
     Indication: COMPLEX REGIONAL PAIN SYNDROME
     Dosage: 15 MG EVERY 4-6 HOURS AS REQUIRED
     Route: 048
  13. ALBUTEROL [Concomitant]
     Indication: PULMONARY MASS
     Dosage: As required
     Route: 055
     Dates: start: 2010
  14. XANAX [Concomitant]
     Indication: INSOMNIA
     Route: 048
  15. PROMETHIZINE [Concomitant]
     Indication: MIGRAINE
     Dosage: As required
     Route: 048
     Dates: start: 2012
  16. TRAZADONE [Concomitant]
  17. AMBIEN [Concomitant]
  18. MAXALT [Concomitant]
     Dosage: 10mg at the beginning of migraine, may repeat every 2 hours,but no more than 3 doses in a 24 hours
  19. ACIPHEX [Concomitant]
     Indication: GASTROOESOPHAGEAL REFLUX DISEASE
  20. FENTANYL [Concomitant]
     Dosage: titrated down to 25mcg, then 12.5mcg
  21. PROTONIX [Concomitant]
  22. PREVACID [Concomitant]

REACTIONS (30)
  - Pneumonia [Unknown]
  - Haemoptysis [Unknown]
  - Pulmonary mass [Unknown]
  - Nocardiosis [Unknown]
  - Adrenal insufficiency [Unknown]
  - Fall [Unknown]
  - Central nervous system lesion [Unknown]
  - Blindness unilateral [Unknown]
  - Hemiplegia [Unknown]
  - Central nervous system infection [Unknown]
  - Erosive oesophagitis [Unknown]
  - Gastrooesophageal reflux disease [Unknown]
  - Sleep disorder due to a general medical condition [Unknown]
  - Oropharyngeal discomfort [Unknown]
  - Hiatus hernia [Unknown]
  - Cough [Unknown]
  - Choking [Unknown]
  - Amnesia [Unknown]
  - Pain [Unknown]
  - Anxiety disorder [Unknown]
  - Poisoning [Unknown]
  - Migraine [Unknown]
  - Nervousness [Unknown]
  - Dysgraphia [Unknown]
  - Panic attack [Unknown]
  - Vomiting [Unknown]
  - Off label use [Unknown]
  - Off label use [Unknown]
  - Drug ineffective [Unknown]
  - Intentional drug misuse [Unknown]
